FAERS Safety Report 10192241 (Version 1)
Quarter: 2014Q2

REPORT INFORMATION
  Report Type: Spontaneous
  Country: BR (occurrence: BR)
  Receive Date: 20140523
  Receipt Date: 20140523
  Transmission Date: 20141212
  Serious: Yes (Other)
  Sender: FDA-Public Use
  Company Number: BR-PFIZER INC-2014139187

PATIENT
  Age: 85 Year
  Sex: Female
  Weight: 95 kg

DRUGS (4)
  1. ALDACTONE [Suspect]
     Indication: HYPERTENSION
     Dosage: 25 MG, DAILY
     Route: 048
  2. DAFLON [Concomitant]
     Indication: ANGIOPATHY
     Dosage: 600 MG, 2X/DAY
     Dates: start: 2006
  3. DIOVAN [Concomitant]
     Indication: HYPERTENSION
     Dosage: 160 MG, DAILY
     Dates: start: 2007
  4. DIPIRONA [Concomitant]
     Indication: PAIN

REACTIONS (4)
  - Breast cancer [Unknown]
  - Tachycardia [Recovered/Resolved]
  - Muscular weakness [Not Recovered/Not Resolved]
  - Angiopathy [Not Recovered/Not Resolved]
